FAERS Safety Report 9445923 (Version 2)
Quarter: 2013Q3

REPORT INFORMATION
  Report Type: Spontaneous
  Country: JP (occurrence: JP)
  Receive Date: 20130807
  Receipt Date: 20130827
  Transmission Date: 20140515
  Serious: Yes (Hospitalization)
  Sender: FDA-Public Use
  Company Number: JP-B.I. PHARMACEUTICALS,INC./RIDGEFIELD-2013-BI-21425NB

PATIENT
  Age: 64 Year
  Sex: Male
  Weight: 67 kg

DRUGS (12)
  1. TRAZENTA [Suspect]
     Indication: TYPE 2 DIABETES MELLITUS
     Dosage: 5 MG
     Route: 048
     Dates: start: 20130705, end: 20130711
  2. GLUFAST [Suspect]
     Indication: TYPE 2 DIABETES MELLITUS
     Dosage: DALIY DOSE: 2DF
     Route: 048
     Dates: start: 20130705, end: 20130711
  3. SUREPOST [Suspect]
     Indication: TYPE 2 DIABETES MELLITUS
     Route: 048
     Dates: end: 20130713
  4. URSO [Concomitant]
     Dosage: 9DF
     Route: 048
     Dates: start: 20110927
  5. ZANTAC [Concomitant]
     Dosage: 2DF
     Route: 048
     Dates: start: 20130618
  6. SEIBULE [Concomitant]
     Indication: TYPE 2 DIABETES MELLITUS
     Dosage: 3DF
     Route: 048
     Dates: start: 20120802, end: 20130718
  7. SEIBULE [Concomitant]
  8. LIVACT [Concomitant]
     Dosage: 1DF
     Route: 048
     Dates: start: 20120221
  9. LASIX [Concomitant]
     Dosage: 1DF
     Route: 048
     Dates: start: 2011
  10. GLYCYRON [Concomitant]
     Dosage: 3DF
     Route: 048
     Dates: start: 20120817, end: 20130724
  11. JANUVIA [Concomitant]
     Dosage: 2DF
  12. INSULIN [Concomitant]

REACTIONS (1)
  - Hyperammonaemia [Not Recovered/Not Resolved]
